FAERS Safety Report 20556323 (Version 3)
Quarter: 2022Q1

REPORT INFORMATION
  Report Type: Spontaneous
  Country: NL (occurrence: NL)
  Receive Date: 20220305
  Receipt Date: 20220312
  Transmission Date: 20220423
  Serious: Yes (Life-Threatening, Hospitalization)
  Sender: FDA-Public Use
  Company Number: NL-UNITED THERAPEUTICS-UNT-2022-004884

PATIENT

DRUGS (1)
  1. REMODULIN [Suspect]
     Active Substance: TREPROSTINIL
     Indication: Pulmonary arterial hypertension
     Dosage: UNK, CONTINUING
     Route: 041
     Dates: end: 202202

REACTIONS (8)
  - Accidental overdose [Recovered/Resolved]
  - Blood pressure decreased [Recovering/Resolving]
  - Pain in jaw [Recovering/Resolving]
  - Flushing [Recovering/Resolving]
  - Device leakage [Unknown]
  - Product use issue [Unknown]
  - Infusion site pain [Unknown]
  - Infusion site erythema [Unknown]

NARRATIVE: CASE EVENT DATE: 20220201
